FAERS Safety Report 7482807-X (Version None)
Quarter: 2011Q2

REPORT INFORMATION
  Report Type: 
  Country: None (occurrence: None)
  Receive Date: 20110516
  Receipt Date: 20110113
  Transmission Date: 20111010
  Serious: No
  Sender: FDA-Public Use
  Company Number: US-BAYER-2011-032332

PATIENT
  Age: 26 Year
  Sex: Female
  Weight: 79 kg

DRUGS (3)
  1. ONE-A-DAY [MINERALS NOS,VITAMINS NOS] [Concomitant]
  2. ORAL CONTRACEPTIVE NOS [Concomitant]
  3. ALEVE (CAPLET) [Suspect]
     Dosage: UNK
     Dates: start: 20110113

REACTIONS (1)
  - EYELID OEDEMA [None]
